FAERS Safety Report 8224029-0 (Version None)
Quarter: 2012Q1

REPORT INFORMATION
  Report Type: 
  Country: None (occurrence: None)
  Receive Date: 20120321
  Receipt Date: 20120315
  Transmission Date: 20120608
  Serious: No
  Sender: FDA-Public Use
  Company Number: US-BAYER-2012-025502

PATIENT
  Sex: Female

DRUGS (1)
  1. MIRENA [Suspect]
     Indication: CONTRACEPTION
     Dosage: 20 MCG/24HR, CONT
     Route: 015
     Dates: start: 20101001

REACTIONS (6)
  - BACK PAIN [None]
  - ABDOMINAL DISTENSION [None]
  - WEIGHT INCREASED [None]
  - ACNE [None]
  - SCIATICA [None]
  - PELVIC PAIN [None]
